FAERS Safety Report 16163345 (Version 1)
Quarter: 2019Q2

REPORT INFORMATION
  Report Type: Spontaneous
  Country: FI (occurrence: FI)
  Receive Date: 20190405
  Receipt Date: 20190405
  Transmission Date: 20190711
  Serious: Yes (Hospitalization)
  Sender: FDA-Public Use
  Company Number: FI-ELI_LILLY_AND_COMPANY-FI201904001171

PATIENT
  Age: 59 Year
  Sex: Male

DRUGS (6)
  1. PLAVIX [Concomitant]
     Active Substance: CLOPIDOGREL BISULFATE
     Indication: PRODUCT USED FOR UNKNOWN INDICATION
  2. TRILEPTAL [Concomitant]
     Active Substance: OXCARBAZEPINE
     Indication: PRODUCT USED FOR UNKNOWN INDICATION
  3. ENALAPRIL [Concomitant]
     Active Substance: ENALAPRIL
     Indication: PRODUCT USED FOR UNKNOWN INDICATION
  4. ZYPREXA [Suspect]
     Active Substance: OLANZAPINE
     Indication: PRODUCT USED FOR UNKNOWN INDICATION
     Dosage: UNK UNK, UNKNOWN
     Route: 065
  5. DEPRAKINE [VALPROIC ACID] [Concomitant]
     Indication: PRODUCT USED FOR UNKNOWN INDICATION
  6. LEPONEX [Suspect]
     Active Substance: CLOZAPINE
     Indication: PRODUCT USED FOR UNKNOWN INDICATION
     Dosage: UNK, UNKNOWN
     Route: 048
     Dates: start: 20061119, end: 20061209

REACTIONS (6)
  - Cardiac failure [Recovering/Resolving]
  - Salivary hypersecretion [Recovering/Resolving]
  - Sepsis [Recovering/Resolving]
  - Tremor [Recovering/Resolving]
  - Cholecystitis [Recovering/Resolving]
  - Biliary tract infection [Recovering/Resolving]

NARRATIVE: CASE EVENT DATE: 20061126
